FAERS Safety Report 7830327-2 (Version None)
Quarter: 2011Q4

REPORT INFORMATION
  Report Type: 
  Country: None (occurrence: None)
  Receive Date: 20111021
  Receipt Date: 20111017
  Transmission Date: 20120403
  Serious: Yes (Other)
  Sender: FDA-Public Use
  Company Number: FR-BRISTOL-MYERS SQUIBB COMPANY-16045700

PATIENT
  Age: 41 Year
  Sex: Female

DRUGS (11)
  1. ABILIFY [Suspect]
     Indication: AFFECTIVE DISORDER
     Route: 048
     Dates: start: 20101101, end: 20110830
  2. EFFEXOR [Concomitant]
     Indication: DEPRESSION
     Route: 048
     Dates: start: 20100101
  3. ABILIFY [Suspect]
     Indication: PSYCHOTIC DISORDER
     Route: 048
     Dates: start: 20101101, end: 20110830
  4. BACLOFEN [Concomitant]
     Indication: DEPENDENCE
     Route: 048
     Dates: start: 20100301
  5. VALIUM [Concomitant]
  6. ACUPAN [Concomitant]
     Indication: PAIN
     Route: 048
     Dates: start: 20110101
  7. OMEPRAZOLE [Concomitant]
  8. ATARAX [Concomitant]
     Indication: ANXIETY
     Route: 048
     Dates: start: 20110110
  9. ABILIFY [Suspect]
     Indication: HALLUCINATION
     Route: 048
     Dates: start: 20101101, end: 20110830
  10. CLORAZEPATE DIPOTASSIUM [Concomitant]
  11. BISOPROLOL FUMARATE [Concomitant]

REACTIONS (2)
  - ANOSMIA [None]
  - EPILEPSY [None]
